FAERS Safety Report 4323028-9 (Version None)
Quarter: 2004Q1

REPORT INFORMATION
  Report Type: 
  Country: None (occurrence: None)
  Receive Date: 20040319
  Receipt Date: 20040312
  Transmission Date: 20041129
  Serious: Yes (Hospitalization)
  Sender: FDA-Public Use
  Company Number: 2004203428US

PATIENT
  Age: 58 Year
  Sex: Male

DRUGS (7)
  1. CELECOXIB VS PLACEBO(CELECOXIB VS PLACEBO) CAPSULE [Suspect]
     Indication: COLORECTAL CANCER METASTATIC
     Dosage: 400 MG, BID, ORAL
     Route: 048
     Dates: start: 20031201, end: 20040312
  2. CAMPTOSAR [Suspect]
     Indication: COLORECTAL CANCER METASTATIC
     Dosage: 235 MG, D1, D8, EVERY 21 DAYS, IV
     Route: 042
     Dates: start: 20031201
  3. LEUCOVORIN CALCIUM [Suspect]
     Indication: COLORECTAL CANCER METASTATIC
     Dosage: 38 MG, D1, D8 EVERY 21 DAYS, IV
     Route: 042
     Dates: start: 20031201
  4. FLUOROURACIL [Suspect]
     Indication: COLORECTAL CANCER METASTATIC
     Dosage: 735 MG, D1 + D8, CYCLIC, IV
     Route: 042
     Dates: start: 20031201
  5. ALTACE [Concomitant]
  6. GLUCOTROL [Concomitant]
  7. LOPRESSOR [Concomitant]

REACTIONS (6)
  - ABDOMINAL PAIN LOWER [None]
  - DYSPNOEA [None]
  - FLUID INTAKE REDUCED [None]
  - NAUSEA [None]
  - RENAL FAILURE [None]
  - VOMITING [None]
